FAERS Safety Report 11433732 (Version 6)
Quarter: 2016Q1

REPORT INFORMATION
  Report Type: Report from Study
  Country: CA (occurrence: CA)
  Receive Date: 20150831
  Receipt Date: 20160203
  Transmission Date: 20160525
  Serious: Yes (Death, Hospitalization)
  Sender: FDA-Public Use
  Company Number: PHHY2014CA115888

PATIENT
  Age: 68 Year
  Sex: Male

DRUGS (3)
  1. SANDOSTATIN [Suspect]
     Active Substance: OCTREOTIDE ACETATE
     Indication: PANCREATITIS CHRONIC
     Dosage: 100 UG, TID
     Route: 058
     Dates: start: 20140904, end: 20140917
  2. SANDOSTATIN LAR DEPOT [Suspect]
     Active Substance: OCTREOTIDE ACETATE
     Indication: PANCREATITIS CHRONIC
     Dosage: 20 MG, QMO
     Route: 030
     Dates: start: 20140904
  3. SANDOSTATIN LAR DEPOT [Suspect]
     Active Substance: OCTREOTIDE ACETATE
     Dosage: 30 MG, QMO
     Route: 030
     Dates: end: 20160105

REACTIONS (12)
  - Abdominal pain [Unknown]
  - Blood pressure increased [Unknown]
  - Product use issue [Unknown]
  - Respiratory rate increased [Unknown]
  - Asthenia [Unknown]
  - Abdominal distension [Unknown]
  - Speech disorder [Unknown]
  - Body temperature decreased [Unknown]
  - Oedema peripheral [Unknown]
  - Death [Fatal]
  - Dyspnoea [Unknown]
  - Balance disorder [Unknown]

NARRATIVE: CASE EVENT DATE: 20140905
